FAERS Safety Report 8501215-3 (Version None)
Quarter: 2012Q3

REPORT INFORMATION
  Report Type: 
  Country: None (occurrence: None)
  Receive Date: 20120710
  Receipt Date: 20120625
  Transmission Date: 20120928
  Serious: Yes (Other)
  Sender: FDA-Public Use
  Company Number: BR-ARROW-2012-11477

PATIENT
  Age: 6 Year
  Sex: Female

DRUGS (2)
  1. VALPROATE SODIUM [Suspect]
     Indication: PARTIAL SEIZURES
     Dosage: 90 MG, DAILY
     Route: 065
  2. LAMOTRIGINE [Suspect]
     Indication: PARTIAL SEIZURES
     Dosage: 200 MG, DAILY
     Route: 065

REACTIONS (5)
  - OPSOCLONUS MYOCLONUS [None]
  - VERTIGO [None]
  - VOMITING [None]
  - ATAXIA [None]
  - HEADACHE [None]
